FAERS Safety Report 24238906 (Version 1)
Quarter: 2024Q3

REPORT INFORMATION
  Report Type: Spontaneous
  Country: US (occurrence: None)
  Receive Date: 20240821
  Receipt Date: 20240821
  Transmission Date: 20241017
  Serious: No
  Sender: Public
  Company Number: None

PATIENT
  Age: 66 Year
  Sex: Female
  Weight: 103.5 kg

DRUGS (9)
  1. VILAZODONE HYDROCHLORIDE [Suspect]
     Active Substance: VILAZODONE HYDROCHLORIDE
     Indication: Cortisol abnormal
     Dosage: OTHER QUANTITY : 1 TABLET(S);?FREQUENCY : DAILY;?
     Route: 048
     Dates: start: 20240520
  2. pravastatin sodiium [Concomitant]
  3. PANTOPRAZOLE [Concomitant]
     Active Substance: PANTOPRAZOLE
  4. FUROSEMIDE [Concomitant]
     Active Substance: FUROSEMIDE
  5. TRIAMCINOLONE [Concomitant]
     Active Substance: TRIAMCINOLONE
  6. VILAZODONE [Concomitant]
     Active Substance: VILAZODONE
  7. ASPIRIN [Concomitant]
     Active Substance: ASPIRIN
  8. Florajen for Digestion Probiotic [Concomitant]
  9. Zebora Multi Collagen Peptides Powder [Concomitant]

REACTIONS (2)
  - Tinnitus [None]
  - Alopecia [None]

NARRATIVE: CASE EVENT DATE: 20240701
